FAERS Safety Report 7089088-X (Version None)
Quarter: 2010Q4

REPORT INFORMATION
  Report Type: 
  Country: None (occurrence: None)
  Receive Date: 20101108
  Receipt Date: 20101028
  Transmission Date: 20110411
  Serious: Yes (Hospitalization)
  Sender: FDA-Public Use
  Company Number: B0683153A

PATIENT
  Age: 50 Year
  Sex: Female

DRUGS (8)
  1. ARIXTRA [Suspect]
     Indication: PRODUCT USED FOR UNKNOWN INDICATION
     Dosage: 7.5MG PER DAY
     Route: 058
     Dates: start: 20100908
  2. DILTIAZEM [Suspect]
     Dosage: 60MG PER DAY
     Route: 048
     Dates: start: 20100908
  3. CIPRALEX [Concomitant]
  4. NEXIUM [Concomitant]
  5. TAMBOCOR [Concomitant]
  6. METOPROLOL SUCCINATE [Concomitant]
  7. PREDNISOLONE [Concomitant]
  8. SEROQUEL [Concomitant]

REACTIONS (1)
  - ACUTE GENERALISED EXANTHEMATOUS PUSTULOSIS [None]
